FAERS Safety Report 11390694 (Version 1)
Quarter: 2015Q3

REPORT INFORMATION
  Report Type: Spontaneous
  Country: US (occurrence: US)
  Receive Date: 20150818
  Receipt Date: 20150818
  Transmission Date: 20151125
  Serious: No
  Sender: FDA-Public Use
  Company Number: US-ROCHE-1415180

PATIENT
  Sex: Female

DRUGS (4)
  1. RIBAVIRIN. [Suspect]
     Active Substance: RIBAVIRIN
     Indication: HEPATITIS C
     Dosage: 3 TABS IN MORNING, 2 TABS AT NIGHT
     Route: 048
     Dates: start: 2013, end: 2013
  2. PEGASYS [Suspect]
     Active Substance: PEGINTERFERON ALFA-2A
     Indication: HEPATITIS C
     Dosage: ONE PEN ONCE A WEEK
     Route: 058
     Dates: start: 2013, end: 2013
  3. VICTRELIS [Suspect]
     Active Substance: BOCEPREVIR
     Indication: HEPATITIS C
     Dosage: 4 CAPSULES 3 TIMES A DAY
     Route: 048
     Dates: start: 2013, end: 2013
  4. PEGASYS [Suspect]
     Active Substance: PEGINTERFERON ALFA-2A
     Dosage: ONE PEN ONCE A WEEK
     Route: 058
     Dates: start: 2013, end: 2013

REACTIONS (5)
  - Blood cortisol increased [Not Recovered/Not Resolved]
  - Red blood cell count decreased [Recovered/Resolved]
  - White blood cell count decreased [Recovered/Resolved]
  - Confusional state [Not Recovered/Not Resolved]
  - Cushing^s syndrome [Not Recovered/Not Resolved]
